FAERS Safety Report 5327827-6 (Version None)
Quarter: 2007Q2

REPORT INFORMATION
  Report Type: 
  Country: None (occurrence: None)
  Receive Date: 20070517
  Receipt Date: 20070508
  Transmission Date: 20071010
  Serious: Yes (Other)
  Sender: FDA-Public Use
  Company Number: ES-JNJFOC-20070502371

PATIENT
  Age: 55 Year
  Sex: Male

DRUGS (3)
  1. TRAMADOL HCL [Suspect]
     Indication: BACK PAIN
     Route: 048
  2. PARACETAMOL [Suspect]
     Route: 065
  3. PARACETAMOL [Suspect]
     Indication: BACK PAIN
     Route: 065

REACTIONS (3)
  - ABDOMINAL PAIN [None]
  - ANURIA [None]
  - RETROPERITONEAL FIBROSIS [None]
